FAERS Safety Report 7428968-X (Version None)
Quarter: 2011Q2

REPORT INFORMATION
  Report Type: 
  Country: None (occurrence: None)
  Receive Date: 20110421
  Receipt Date: 20110408
  Transmission Date: 20111010
  Serious: Yes (Hospitalization, Other)
  Sender: FDA-Public Use
  Company Number: US-JNJFOC-20110106048

PATIENT
  Sex: Female
  Weight: 80.74 kg

DRUGS (12)
  1. IBUPROFEN [Concomitant]
     Dosage: PRN
     Route: 065
  2. TEMAZEPAM [Concomitant]
     Route: 065
  3. BYSTOLIC [Concomitant]
     Route: 065
  4. LEXAPRO [Concomitant]
     Route: 065
  5. MTX [Concomitant]
     Route: 065
  6. FLEXERIL [Concomitant]
     Route: 065
  7. REMICADE [Suspect]
     Indication: RHEUMATOID ARTHRITIS
     Dosage: FIRST 8 WEEK MAINTENANCE DOSE
     Route: 042
  8. VALIUM [Concomitant]
     Route: 065
  9. VICODIN [Concomitant]
     Route: 065
  10. PLAQUENIL [Concomitant]
     Route: 065
  11. SERTRALINE [Concomitant]
     Route: 065
  12. FOLIC ACID [Concomitant]
     Route: 065

REACTIONS (9)
  - OXYGEN SATURATION DECREASED [None]
  - INFUSION RELATED REACTION [None]
  - BLOOD PRESSURE INCREASED [None]
  - DYSKINESIA [None]
  - DYSPNOEA [None]
  - MUSCLE SPASMS [None]
  - CHEST DISCOMFORT [None]
  - NAUSEA [None]
  - HEADACHE [None]
